FAERS Safety Report 8027607-7 (Version None)
Quarter: 2012Q1

REPORT INFORMATION
  Report Type: 
  Country: None (occurrence: None)
  Receive Date: 20120105
  Receipt Date: 20120105
  Transmission Date: 20120608
  Serious: Yes (Other)
  Sender: FDA-Public Use
  Company Number: None

PATIENT
  Age: 86 Year
  Sex: Male
  Weight: 71.7 kg

DRUGS (1)
  1. BUSPIRONE HCL [Suspect]
     Dates: start: 20111209

REACTIONS (1)
  - PALPITATIONS [None]
